FAERS Safety Report 9246213 (Version 2)
Quarter: 2013Q2

REPORT INFORMATION
  Report Type: Spontaneous
  Country: FR (occurrence: FR)
  Receive Date: 20130422
  Receipt Date: 20130430
  Transmission Date: 20140414
  Serious: Yes (Hospitalization)
  Sender: FDA-Public Use
  Company Number: JP-ASTRAZENECA-2013SE26058

PATIENT
  Age: 78 Year
  Sex: Female

DRUGS (1)
  1. COKENZEN [Suspect]
     Indication: HYPERTENSION
     Route: 048
     Dates: start: 20021127, end: 20110215

REACTIONS (2)
  - Gout [Recovered/Resolved]
  - Hyperuricaemia [Recovered/Resolved]
